FAERS Safety Report 4469507-5 (Version None)
Quarter: 2004Q4

REPORT INFORMATION
  Report Type: 
  Country: None (occurrence: None)
  Receive Date: 20041005
  Receipt Date: 20040920
  Transmission Date: 20050328
  Serious: Yes (Hospitalization)
  Sender: FDA-Public Use
  Company Number: 1189

PATIENT
  Age: 21 Year
  Sex: Female

DRUGS (1)
  1. LORATADINE [Suspect]
     Indication: SEASONAL ALLERGY
     Dosage: 1 TAB PO OD
     Route: 048

REACTIONS (2)
  - CONVULSION [None]
  - HEART RATE INCREASED [None]
